FAERS Safety Report 8474011-3 (Version None)
Quarter: 2012Q2

REPORT INFORMATION
  Report Type: 
  Country: None (occurrence: None)
  Receive Date: 20120628
  Receipt Date: 20120323
  Transmission Date: 20120825
  Serious: Yes (Death, Hospitalization)
  Sender: FDA-Public Use
  Company Number: US-MYLANLABS-2012S1006300

PATIENT
  Age: 85 Year
  Sex: Male

DRUGS (1)
  1. CLOZAPINE [Suspect]
     Indication: PARKINSON'S DISEASE
     Route: 048
     Dates: start: 20070601, end: 20120201

REACTIONS (3)
  - PNEUMOTHORAX [None]
  - BRONCHIAL SECRETION RETENTION [None]
  - STAPHYLOCOCCAL INFECTION [None]
